FAERS Safety Report 26211514 (Version 1)
Quarter: 2025Q4

REPORT INFORMATION
  Report Type: Spontaneous
  Country: US (occurrence: US)
  Receive Date: 20251230
  Receipt Date: 20251230
  Transmission Date: 20260118
  Serious: No
  Sender: GALDERMA
  Company Number: US-GALDERMA-US2025026618

PATIENT

DRUGS (1)
  1. NEMLUVIO [Suspect]
     Active Substance: NEMOLIZUMAB-ILTO
     Indication: Neurodermatitis
     Route: 058

REACTIONS (5)
  - Skin ulcer [Recovering/Resolving]
  - Pruritus [Recovering/Resolving]
  - Influenza [Recovering/Resolving]
  - Bronchitis [Recovering/Resolving]
  - Inappropriate schedule of product administration [Recovered/Resolved]
